FAERS Safety Report 18001783 (Version 1)
Quarter: 2020Q3

REPORT INFORMATION
  Report Type: Spontaneous
  Country: US (occurrence: US)
  Receive Date: 20200709
  Receipt Date: 20200709
  Transmission Date: 20201103
  Serious: No
  Sender: FDA-Public Use
  Company Number: US-BIOVITRUM-2020SE12815

PATIENT
  Sex: Female
  Weight: 7 kg

DRUGS (3)
  1. NO DRUG NAME [Concomitant]
     Active Substance: UNSPECIFIED INGREDIENT
  2. SYNAGIS [Suspect]
     Active Substance: PALIVIZUMAB
     Indication: ILL-DEFINED DISORDER
     Route: 030
     Dates: start: 20191106, end: 20200228
  3. RANITIDINE HYDROCHLORIDE. [Concomitant]
     Active Substance: RANITIDINE HYDROCHLORIDE

REACTIONS (1)
  - Weight decreased [Unknown]
